FAERS Safety Report 18098207 (Version 1)
Quarter: 2020Q3

REPORT INFORMATION
  Report Type: Spontaneous
  Country: US (occurrence: US)
  Receive Date: 20200731
  Receipt Date: 20200731
  Transmission Date: 20201103
  Serious: No
  Sender: FDA-Public Use
  Company Number: None

PATIENT
  Age: 68 Year
  Sex: Male
  Weight: 67.05 kg

DRUGS (7)
  1. EXCEDREN [Concomitant]
     Dates: start: 20200731
  2. JAKAFI [Suspect]
     Active Substance: RUXOLITINIB
     Route: 048
  3. OMEPRAZOLE. [Concomitant]
     Active Substance: OMEPRAZOLE
     Dates: start: 20191004
  4. VITAMIN C [Concomitant]
     Active Substance: ASCORBIC ACID
     Dates: start: 20200731
  5. PRAVASTATIN. [Concomitant]
     Active Substance: PRAVASTATIN
     Dates: start: 20191004
  6. ELIQUIS [Concomitant]
     Active Substance: APIXABAN
     Dates: start: 20200731
  7. FOLIC ACID. [Concomitant]
     Active Substance: FOLIC ACID
     Dates: start: 20191011

REACTIONS (2)
  - Therapy change [None]
  - Neuropathy peripheral [None]

NARRATIVE: CASE EVENT DATE: 20200731
